FAERS Safety Report 5590524-6 (Version None)
Quarter: 2008Q1

REPORT INFORMATION
  Report Type: 
  Country: None (occurrence: None)
  Receive Date: 20080114
  Receipt Date: 20080110
  Transmission Date: 20080703
  Serious: Yes (Hospitalization)
  Sender: FDA-Public Use
  Company Number: JP-BOEHRINGER INGELHEIM PHARMACEUTICALS, INC.-2008-BP-00529NB

PATIENT
  Age: 75 Year
  Sex: Female

DRUGS (1)
  1. MOBIC [Suspect]
     Route: 048
     Dates: start: 20071107, end: 20071124

REACTIONS (1)
  - ECZEMA [None]
